FAERS Safety Report 7458030-1 (Version None)
Quarter: 2011Q2

REPORT INFORMATION
  Report Type: 
  Country: None (occurrence: None)
  Receive Date: 20110504
  Receipt Date: 20110425
  Transmission Date: 20111010
  Serious: Yes (Other)
  Sender: FDA-Public Use
  Company Number: US-ASTRAZENECA-2011SE24735

PATIENT
  Age: 62 Year
  Sex: Female

DRUGS (3)
  1. TOPROL-XL [Suspect]
     Route: 048
  2. SEROQUEL [Suspect]
     Route: 048
  3. NEXIUM [Suspect]
     Route: 048

REACTIONS (2)
  - HAND FRACTURE [None]
  - CLAVICLE FRACTURE [None]
